FAERS Safety Report 8015365-1 (Version None)
Quarter: 2011Q4

REPORT INFORMATION
  Report Type: 
  Country: None (occurrence: None)
  Receive Date: 20111230
  Receipt Date: 20111220
  Transmission Date: 20120403
  Serious: Yes (Death)
  Sender: FDA-Public Use
  Company Number: US-ELI_LILLY_AND_COMPANY-US201111007416

PATIENT
  Sex: Female
  Weight: 49.433 kg

DRUGS (9)
  1. VITAMIN D [Concomitant]
     Dosage: 1000 IU, QD
  2. TYLENOL                                 /SCH/ [Concomitant]
     Dosage: 650 MG, TID
  3. SYNTHROID [Concomitant]
  4. VITAMIN E [Concomitant]
     Dosage: 400 IU, UNKNOWN
  5. FORTEO [Suspect]
     Indication: OSTEOPOROSIS
     Dosage: 20 UG, QD
     Dates: start: 20100501
  6. DIOVAN [Concomitant]
  7. ASPIRIN [Concomitant]
     Dosage: 80 MG, UNKNOWN
  8. CITALOPRAM HYDROBROMIDE [Concomitant]
  9. METOPROLOL SUCCINATE [Concomitant]

REACTIONS (2)
  - CHOKING [None]
  - CARDIAC ARREST [None]
